FAERS Safety Report 25130226 (Version 1)
Quarter: 2025Q1

REPORT INFORMATION
  Report Type: Spontaneous
  Country: US (occurrence: US)
  Receive Date: 20250327
  Receipt Date: 20250327
  Transmission Date: 20250409
  Serious: No
  Sender: ESPERION THERAPEUTICS
  Company Number: US-ESPERIONTHERAPEUTICS-2024USA00457

PATIENT
  Age: 60 Year
  Sex: Female
  Weight: 90.703 kg

DRUGS (5)
  1. NEXLIZET [Suspect]
     Active Substance: BEMPEDOIC ACID\EZETIMIBE
     Indication: Product used for unknown indication
     Dosage: 180MG/10MG, QD
     Route: 048
     Dates: start: 202402, end: 202402
  2. NEXLIZET [Suspect]
     Active Substance: BEMPEDOIC ACID\EZETIMIBE
     Dosage: 1/2 TABLET, QD
     Route: 048
     Dates: start: 202403
  3. VALSARTAN [Concomitant]
     Active Substance: VALSARTAN
     Route: 065
  4. INDAPAMIDE [Concomitant]
     Active Substance: INDAPAMIDE
     Route: 065
  5. METOPROLOL TARTRATE [Concomitant]
     Active Substance: METOPROLOL TARTRATE
     Dosage: 50 MILLIGRAM, BID
     Route: 065

REACTIONS (4)
  - Gait inability [Recovered/Resolved]
  - Off label use [Not Recovered/Not Resolved]
  - Tendon pain [Recovered/Resolved]
  - Arthralgia [Recovered/Resolved]

NARRATIVE: CASE EVENT DATE: 20240201
